FAERS Safety Report 6491605-5 (Version None)
Quarter: 2009Q4

REPORT INFORMATION
  Report Type: 
  Country: None (occurrence: None)
  Receive Date: 20091211
  Receipt Date: 20091201
  Transmission Date: 20100525
  Serious: Yes (Hospitalization)
  Sender: FDA-Public Use
  Company Number: ES-GENENTECH-295597

PATIENT
  Age: 71 Year
  Sex: Male

DRUGS (4)
  1. MABTHERA [Suspect]
     Indication: CHRONIC LYMPHOCYTIC LEUKAEMIA
     Dosage: UNK
     Route: 042
     Dates: start: 20091020, end: 20091020
  2. PARACETAMOL [Concomitant]
     Indication: PROPHYLAXIS
     Dosage: UNK
  3. ONDANSETRON [Concomitant]
     Indication: PROPHYLAXIS
     Dosage: UNK
  4. URBASON [Concomitant]
     Indication: DRUG USE FOR UNKNOWN INDICATION
     Dosage: UNK

REACTIONS (4)
  - CHEST DISCOMFORT [None]
  - HYPERHIDROSIS [None]
  - MALAISE [None]
  - RENAL PAIN [None]
